FAERS Safety Report 6815402-3 (Version None)
Quarter: 2010Q3

REPORT INFORMATION
  Report Type: 
  Country: None (occurrence: None)
  Receive Date: 20100702
  Receipt Date: 20100624
  Transmission Date: 20110219
  Serious: Yes (Other)
  Sender: FDA-Public Use
  Company Number: CA-JNJFOC-20100608517

PATIENT
  Sex: Female
  Weight: 28 kg

DRUGS (6)
  1. REMICADE [Suspect]
     Indication: JUVENILE ARTHRITIS
     Route: 042
  2. REMICADE [Suspect]
     Route: 042
  3. PREDNISONE [Concomitant]
     Route: 048
  4. LEFLUNOMIDE [Concomitant]
  5. PREVACID [Concomitant]
     Route: 048
  6. EYE DROPS, NOS [Concomitant]

REACTIONS (1)
  - HEPATIC ENZYME INCREASED [None]
